FAERS Safety Report 21475043 (Version 1)
Quarter: 2022Q4

REPORT INFORMATION
  Report Type: Spontaneous
  Country: US (occurrence: US)
  Receive Date: 20221019
  Receipt Date: 20221019
  Transmission Date: 20230113
  Serious: No
  Sender: FDA-Public Use
  Company Number: US-CELLTRION INC.-2021US015100

PATIENT

DRUGS (6)
  1. INFLECTRA [Suspect]
     Active Substance: INFLIXIMAB-DYYB
     Indication: Crohn^s disease
     Dosage: INFUSION, RECEIVED 5MG
     Route: 065
     Dates: start: 20210601
  2. INFLECTRA [Suspect]
     Active Substance: INFLIXIMAB-DYYB
     Dosage: 5 MG (5TH DOSE)
     Dates: start: 20211103
  3. LEVOTHYROXINE [Concomitant]
     Active Substance: LEVOTHYROXINE
     Indication: Thyroid disorder
     Dosage: 50MCG EVERY DAY
  4. MESALAMINE [Concomitant]
     Active Substance: MESALAMINE
     Indication: Crohn^s disease
     Dosage: 2400 MG A DAY
  5. ASPIRIN [Concomitant]
     Active Substance: ASPIRIN
     Dosage: UNK
  6. CLOPIDOGREL [Concomitant]
     Active Substance: CLOPIDOGREL BISULFATE
     Dosage: 75MG ONCE A DAY
     Dates: end: 20211101

REACTIONS (8)
  - Body temperature increased [Recovered/Resolved]
  - Oral pruritus [Recovered/Resolved]
  - Haemoglobin decreased [Unknown]
  - Blood pressure increased [Unknown]
  - Swelling face [Recovering/Resolving]
  - Urticaria [Recovered/Resolved]
  - Erythema [Recovered/Resolved]
  - Drug hypersensitivity [Unknown]

NARRATIVE: CASE EVENT DATE: 20211103
